FAERS Safety Report 7544221-8 (Version None)
Quarter: 2011Q2

REPORT INFORMATION
  Report Type: 
  Country: None (occurrence: None)
  Receive Date: 20110613
  Receipt Date: 20060821
  Transmission Date: 20111010
  Serious: Yes (Hospitalization)
  Sender: FDA-Public Use
  Company Number: PHHO2006CL13789

PATIENT
  Sex: Female

DRUGS (8)
  1. FUROSEMIDE [Concomitant]
  2. OMEPRAZOLE [Concomitant]
     Indication: GASTRITIS
  3. SPIRIVA [Concomitant]
     Indication: RESPIRATORY FAILURE
  4. ATENOLOL [Concomitant]
     Indication: HYPERTENSION
  5. SERETIDE [Concomitant]
     Indication: RESPIRATORY FAILURE
  6. NORVASC [Concomitant]
     Indication: HYPERTENSION
  7. VALSARTAN [Suspect]
     Indication: ARRHYTHMIA
     Dosage: 160 MG, QD
     Route: 048
     Dates: start: 20060401
  8. GLUCOPHAGE [Concomitant]
     Indication: DIABETES MELLITUS

REACTIONS (2)
  - ARRHYTHMIA [None]
  - ATRIAL FIBRILLATION [None]
